FAERS Safety Report 6172898-0 (Version None)
Quarter: 2009Q2

REPORT INFORMATION
  Report Type: 
  Country: None (occurrence: None)
  Receive Date: 20090430
  Receipt Date: 20090422
  Transmission Date: 20091009
  Serious: No
  Sender: FDA-Public Use
  Company Number: BR-EISAI INC.-E3810-02779-SPO-BR

PATIENT
  Age: 52 Year
  Sex: Female
  Weight: 33.142 kg

DRUGS (2)
  1. PARIET (RABEPRAZOLE) [Suspect]
     Indication: GASTRITIS
     Dates: start: 20090418
  2. OMEPRAZOLE [Concomitant]
     Indication: GASTRITIS

REACTIONS (3)
  - ABDOMINAL PAIN [None]
  - HEADACHE [None]
  - YELLOW SKIN [None]
